FAERS Safety Report 17698330 (Version 2)
Quarter: 2020Q2

REPORT INFORMATION
  Report Type: Spontaneous
  Country: US (occurrence: US)
  Receive Date: 20200423
  Receipt Date: 20200429
  Transmission Date: 20200714
  Serious: No
  Sender: FDA-Public Use
  Company Number: US-PFIZER INC-2020039162

PATIENT
  Age: 83 Year

DRUGS (2)
  1. LYRICA [Suspect]
     Active Substance: PREGABALIN
     Indication: NEUROPATHY PERIPHERAL
     Dosage: 1 DF, UNK [TAKE 2 PILLS INSTEAD OF ONE]
  2. LYRICA [Suspect]
     Active Substance: PREGABALIN
     Indication: PAIN

REACTIONS (2)
  - Herpes zoster [Not Recovered/Not Resolved]
  - Condition aggravated [Not Recovered/Not Resolved]
